FAERS Safety Report 9828001 (Version 1)
Quarter: 2014Q1

REPORT INFORMATION
  Report Type: Spontaneous
  Country: US (occurrence: None)
  Receive Date: 20140116
  Receipt Date: 20140116
  Transmission Date: 20141002
  Serious: Yes (Life-Threatening, Hospitalization)
  Sender: FDA-Public Use
  Company Number: None

PATIENT
  Age: 65 Year
  Sex: Male
  Weight: 96.7 kg

DRUGS (1)
  1. AMIODARONE [Suspect]
     Indication: SURGERY
     Route: 048
     Dates: start: 20130926, end: 20131004

REACTIONS (8)
  - Traumatic lung injury [None]
  - Toxicity to various agents [None]
  - Alveolitis [None]
  - Azotaemia [None]
  - Renal failure [None]
  - Leukocytosis [None]
  - Anaemia [None]
  - Pulmonary toxicity [None]
